FAERS Safety Report 6053077-4 (Version None)
Quarter: 2009Q1

REPORT INFORMATION
  Report Type: 
  Country: None (occurrence: None)
  Receive Date: 20090122
  Receipt Date: 20090109
  Transmission Date: 20090719
  Serious: Yes (Hospitalization, Disabling)
  Sender: FDA-Public Use
  Company Number: 039913

PATIENT
  Age: 38 Year
  Sex: Female

DRUGS (6)
  1. CARBAMAZEPINE [Suspect]
     Indication: EPILEPSY
  2. PHENOBARBITAL TAB [Suspect]
     Indication: EPILEPSY
     Dosage: 180 MG, QD
  3. SECOBARBITAL SODIUM [Suspect]
     Dosage: SEVERAL TIMES A WEEK AT BEDTIME
  4. PHENYTOIN [Concomitant]
  5. LEVOTHYROXINE SODIUM [Concomitant]
  6. IBUPROFEN [Concomitant]

REACTIONS (4)
  - COMPLEX REGIONAL PAIN SYNDROME [None]
  - CONDITION AGGRAVATED [None]
  - CONVULSION [None]
  - NO THERAPEUTIC RESPONSE [None]
